FAERS Safety Report 7951204-2 (Version None)
Quarter: 2011Q4

REPORT INFORMATION
  Report Type: 
  Country: None (occurrence: None)
  Receive Date: 20111201
  Receipt Date: 20111118
  Transmission Date: 20120403
  Serious: Yes (Congenital Anomaly)
  Sender: FDA-Public Use
  Company Number: PHHY2011FR102164

PATIENT
  Sex: Female
  Weight: 3.3 kg

DRUGS (5)
  1. CLONAZEPAM [Concomitant]
     Dosage: 1 MG, DAILY
     Route: 064
     Dates: start: 20100101, end: 20110601
  2. ABILIFY [Concomitant]
     Dosage: 15 MG, DAILY
     Route: 064
     Dates: start: 20100401
  3. DEPAKOTE [Concomitant]
     Dosage: 1000 MG, DAILY
     Route: 064
     Dates: start: 20100101, end: 20110101
  4. FOLIC ACID [Concomitant]
     Dosage: 4 MG, DAILY
     Route: 064
     Dates: start: 20110101, end: 20111001
  5. CLOZAPINE [Suspect]
     Indication: SCHIZOAFFECTIVE DISORDER
     Dosage: 300 MG, QD
     Route: 064
     Dates: start: 20100401

REACTIONS (2)
  - FOETAL EXPOSURE DURING PREGNANCY [None]
  - CONGENITAL HYPOTHYROIDISM [None]
